FAERS Safety Report 22072278 (Version 2)
Quarter: 2023Q1

REPORT INFORMATION
  Report Type: Other
  Country: US (occurrence: None)
  Receive Date: 20230308
  Receipt Date: 20230309
  Transmission Date: 20230418
  Serious: Yes (Death, Hospitalization, Other)
  Sender: FDA-Public Use
  Company Number: US-ROCHE-3299422

PATIENT
  Age: 71 Year
  Sex: Male
  Weight: 88.530 kg

DRUGS (32)
  1. RITUXAN [Suspect]
     Active Substance: RITUXIMAB
     Indication: Chronic lymphocytic leukaemia
     Dosage: WEEKLY FOR 4 WEEK AND THEN MONTHLY
     Route: 042
     Dates: end: 20230227
  2. RITUXAN [Suspect]
     Active Substance: RITUXIMAB
     Indication: Prostate cancer
  3. RITUXAN [Suspect]
     Active Substance: RITUXIMAB
     Indication: B-cell lymphoma
  4. RITUXAN [Suspect]
     Active Substance: RITUXIMAB
     Indication: Lymphocytosis
  5. VENCLEXTA [Suspect]
     Active Substance: VENETOCLAX
     Indication: Chronic lymphocytic leukaemia
     Dosage: 4 TABLET BY MOUTH EVERY 24 HOURS/ TAKE 4 TABS BY MOUTH DAILY
     Route: 048
  6. VENCLEXTA [Suspect]
     Active Substance: VENETOCLAX
     Indication: Lymphocytosis
  7. VENCLEXTA [Suspect]
     Active Substance: VENETOCLAX
     Indication: B-cell lymphoma
  8. VENCLEXTA [Suspect]
     Active Substance: VENETOCLAX
     Indication: Prostate cancer
  9. LIPITOR [Concomitant]
     Active Substance: ATORVASTATIN CALCIUM
     Dosage: TAKE 1 TABLET BY MOUTH EVERY DAY
     Route: 048
  10. VITAMIN D3 [Concomitant]
     Active Substance: CHOLECALCIFEROL
     Dosage: TAKE BY MOUTH
     Route: 048
  11. LAXIS [Concomitant]
     Dosage: TAKE 0.5 TABLETS (10MG TOTAL) BY MOUTH DAILY FOR 3 DAYS
     Route: 048
  12. NEURONTIN [Concomitant]
     Active Substance: GABAPENTIN
     Dosage: TAKE 1 TABLET AT BEDTIME THEN INCREASE 1 TAB EVERY DAYS UNTIL REACH 100 MG TID
     Route: 048
  13. ROBAXIN [Concomitant]
     Active Substance: METHOCARBAMOL
     Indication: Muscle spasms
     Dosage: 1 TABLET BY MOUTH 4 TIMES A DAY
     Route: 048
  14. LOPRESSOR [Concomitant]
     Active Substance: METOPROLOL TARTRATE
     Dosage: 1/2 TABLET BY MOUTH TWICE A DAY
     Route: 048
  15. OMEGA-3 FATTY ACIDS [Concomitant]
     Active Substance: OMEGA-3 FATTY ACIDS
     Dosage: 1 CAPSULE BY MOUTH DAILY
     Route: 048
  16. CIALIS [Concomitant]
     Active Substance: TADALAFIL
     Dosage: 20MG PO TWICE A WEEK AS NEEDED
     Route: 048
  17. ULTRAM [Concomitant]
     Active Substance: TRAMADOL HYDROCHLORIDE
     Dosage: TAKE 50MG MOUTH EVERY 6 HOURS AS NEEDED
     Route: 048
  18. MORPHINE [Concomitant]
     Active Substance: MORPHINE
     Dosage: MG PER DAY
  19. VITAMIN E [Concomitant]
     Active Substance: .ALPHA.-TOCOPHEROL
     Dosage: TAKE 400 UNITS BY MOUTH DAILY
     Route: 048
  20. ACETAMINOPHEN [Concomitant]
     Active Substance: ACETAMINOPHEN
     Dosage: 500MG TABLET
     Route: 048
  21. ZYLOPRIM [Concomitant]
     Active Substance: ALLOPURINOL
     Dosage: 100MG TABLET
     Route: 048
  22. CYMBALTA [Concomitant]
     Active Substance: DULOXETINE HYDROCHLORIDE
     Dosage: 20MG CAPSULE
     Route: 048
  23. FAMOTIDINE [Concomitant]
     Active Substance: FAMOTIDINE
     Dosage: 20MG TABLET
     Route: 048
  24. FLONASE [Concomitant]
     Active Substance: FLUTICASONE PROPIONATE
     Dosage: 50MCG BASAL SPRAY
  25. ZESTRIL [Concomitant]
     Active Substance: LISINOPRIL
     Dosage: 20MG TABLET
     Route: 048
  26. PROCARDIA XL [Concomitant]
     Active Substance: NIFEDIPINE
     Dosage: 60MG TABLET
     Route: 048
  27. ZOFRAN [Concomitant]
     Active Substance: ONDANSETRON HYDROCHLORIDE
     Dosage: 8MG TABLET
  28. ZOFRAN [Concomitant]
     Active Substance: ONDANSETRON HYDROCHLORIDE
     Dosage: 8 MG DISINTIGRATING TABLET
  29. VANCOCIN [Concomitant]
     Active Substance: VANCOMYCIN HYDROCHLORIDE
     Dosage: 125 MG CAPSULE
  30. ADRIAMYCIN [Concomitant]
     Active Substance: DOXORUBICIN HYDROCHLORIDE
     Dosage: 50MG/M2= 104 MG
  31. ONCOVIN [Concomitant]
     Active Substance: VINCRISTINE SULFATE
     Dosage: 1.4MG/M2
  32. CYTOXAN [Concomitant]
     Active Substance: CYCLOPHOSPHAMIDE
     Dosage: 1560 MG

REACTIONS (29)
  - Pleural effusion [Not Recovered/Not Resolved]
  - Abdominal wall mass [Not Recovered/Not Resolved]
  - Dyspnoea [Not Recovered/Not Resolved]
  - Disease progression [Fatal]
  - Cancer pain [Unknown]
  - Back pain [Unknown]
  - Encephalopathy [Unknown]
  - Inappropriate antidiuretic hormone secretion [Unknown]
  - Extradural abscess [Unknown]
  - Polyneuropathy [Unknown]
  - Paraesthesia [Unknown]
  - Pleural effusion [Unknown]
  - Hypertension [Unknown]
  - Tricuspid valve incompetence [Unknown]
  - Diastolic dysfunction [Unknown]
  - Radiculopathy [Unknown]
  - Cellulitis [Unknown]
  - Sepsis [Unknown]
  - Clostridium difficile colitis [Unknown]
  - Clostridium difficile infection [Unknown]
  - Clostridium difficile colitis [Unknown]
  - Intervertebral discitis [Unknown]
  - Osteomyelitis [Unknown]
  - Oral pain [Unknown]
  - Intervertebral disc degeneration [Unknown]
  - Intervertebral disc degeneration [Unknown]
  - Hyperlipidaemia [Unknown]
  - Hyponatraemia [Unknown]
  - Hypoalbuminaemia [Unknown]

NARRATIVE: CASE EVENT DATE: 20230301
